FAERS Safety Report 4475584-8 (Version None)
Quarter: 2004Q4

REPORT INFORMATION
  Report Type: 
  Country: None (occurrence: None)
  Receive Date: 20041012
  Receipt Date: 20040928
  Transmission Date: 20050328
  Serious: Yes (Other)
  Sender: FDA-Public Use
  Company Number: 2004071100

PATIENT
  Age: 84 Year
  Sex: Female

DRUGS (2)
  1. ATARAX [Suspect]
     Indication: ANXIETY
     Dosage: 300 MG (3 IN 1 D), ORAL
     Route: 048
  2. CITALOPRAM HYDROBROMIDE [Suspect]
     Indication: DEPRESSION
     Dosage: (2 IN 1 D), ORAL
     Route: 048

REACTIONS (5)
  - ANXIETY [None]
  - CHILLS [None]
  - DIFFICULTY IN WALKING [None]
  - DISEASE RECURRENCE [None]
  - SEROTONIN SYNDROME [None]
